FAERS Safety Report 9266028 (Version 2)
Quarter: 2013Q4

REPORT INFORMATION
  Report Type: Spontaneous
  Country: US (occurrence: US)
  Receive Date: 20130501
  Receipt Date: 20131003
  Transmission Date: 20140711
  Serious: Yes (Hospitalization, Other)
  Sender: FDA-Public Use
  Company Number: US-B.I. PHARMACEUTICALS,INC./RIDGEFIELD-2013-BI-12164BP

PATIENT
  Age: 78 Year
  Sex: Male
  Weight: 92.99 kg

DRUGS (15)
  1. PRADAXA [Suspect]
     Indication: ANTICOAGULANT THERAPY
     Dosage: 300 MG
     Route: 048
     Dates: start: 20110804, end: 20120124
  2. PRADAXA [Suspect]
     Indication: ATRIAL FIBRILLATION
  3. ASPIRIN [Concomitant]
     Dosage: 81 MG
     Route: 048
  4. COLESTIPOL [Concomitant]
     Dosage: 2 G
     Route: 048
  5. LOSARTAN [Concomitant]
     Dosage: 100 MG
     Route: 048
  6. METOPROLOL [Concomitant]
     Dosage: 200 MG
     Route: 048
  7. PRAVASTATIN [Concomitant]
     Dosage: 40 MG
     Route: 048
  8. VERAPAMIL [Concomitant]
     Dosage: 360 MG
     Route: 048
  9. TRAMADOL [Concomitant]
     Route: 048
  10. LASIX [Concomitant]
     Dosage: 40 MG
     Route: 048
  11. SPIRONOLACTONE [Concomitant]
     Dosage: 25 MG
     Route: 048
  12. ALPHAGAN [Concomitant]
  13. BRINZOLAMIDE [Concomitant]
  14. LEVOTHYROXINE [Concomitant]
     Dosage: 75 MCG
     Route: 048
  15. ERGOCALCIFEROL [Concomitant]
     Route: 048

REACTIONS (2)
  - Gastrointestinal haemorrhage [Recovered/Resolved]
  - Renal failure acute [Recovered/Resolved]
